FAERS Safety Report 10590860 (Version 4)
Quarter: 2014Q4

REPORT INFORMATION
  Report Type: Report from Study
  Country: IE (occurrence: IE)
  Receive Date: 20141118
  Receipt Date: 20141210
  Transmission Date: 20150529
  Serious: Yes (Hospitalization)
  Sender: FDA-Public Use
  Company Number: IE-GLAXOSMITHKLINE-IE2014GSK019292

PATIENT
  Age: 61 Year
  Sex: Female
  Weight: 80 kg

DRUGS (7)
  1. DABRAFENIB + TRAMETINIB [Suspect]
     Active Substance: DABRAFENIB\TRAMETINIB
  2. BLINDED INVESTIGATIONAL DRUG, UNSPECIFIED [Suspect]
     Active Substance: INVESTIGATIONAL PRODUCT
     Dosage: 150 MG, BID
     Dates: start: 20140919
  3. BLINDED TRAMETINIB [Suspect]
     Active Substance: TRAMETINIB
     Dosage: 150 MG, BID
     Dates: start: 20140919
  4. GSK1120212 [Suspect]
     Active Substance: TRAMETINIB
     Indication: METASTATIC MALIGNANT MELANOMA
     Dosage: 2 MG, QD
     Route: 048
     Dates: start: 20140919
  5. BLINDED DABRAFENIB [Suspect]
     Active Substance: DABRAFENIB
     Dosage: 150 MG, BID
     Dates: start: 20140919
  6. BLINDED TRAMETINIB [Suspect]
     Active Substance: TRAMETINIB
     Dosage: 150 MG, BID
     Dates: start: 20140919
  7. BLINDED DABRAFENIB [Suspect]
     Active Substance: DABRAFENIB
     Dosage: 150 MG, BID
     Dates: start: 20140919

REACTIONS (4)
  - Influenza like illness [Recovered/Resolved]
  - Pyrexia [Unknown]
  - Arthralgia [Recovering/Resolving]
  - Pyrexia [Recovered/Resolved]

NARRATIVE: CASE EVENT DATE: 20141106
